FAERS Safety Report 8984856 (Version 1)
Quarter: 2012Q4

REPORT INFORMATION
  Report Type: Report from Study
  Country: CA (occurrence: CA)
  Receive Date: 20121225
  Receipt Date: 20121225
  Transmission Date: 20130627
  Serious: Yes (Other)
  Sender: FDA-Public Use
  Company Number: CA-JNJFOC-20121208968

PATIENT
  Sex: Female
  Weight: 54 kg

DRUGS (8)
  1. REMICADE [Suspect]
     Indication: UVEITIS
     Route: 042
  2. REMICADE [Suspect]
     Indication: ANKYLOSING SPONDYLITIS
     Route: 042
  3. CELLCEPT [Concomitant]
     Route: 065
  4. NEXIUM [Concomitant]
     Route: 065
  5. DETROL [Concomitant]
     Route: 065
  6. PIROXICAM [Concomitant]
     Route: 065
  7. AMOXIL [Concomitant]
     Indication: PROPHYLAXIS
     Dosage: routine prophylaxis
     Route: 065
  8. EMPRACET [Concomitant]
     Dosage: as necessary
     Route: 065

REACTIONS (1)
  - Visual acuity reduced [Not Recovered/Not Resolved]
